FAERS Safety Report 6254633-0 (Version None)
Quarter: 2009Q3

REPORT INFORMATION
  Report Type: 
  Country: None (occurrence: None)
  Receive Date: 20090702
  Receipt Date: 20090626
  Transmission Date: 20100115
  Serious: Yes (Death)
  Sender: FDA-Public Use
  Company Number: B0571894A

PATIENT
  Sex: Male

DRUGS (8)
  1. REQUIP [Suspect]
     Indication: PARKINSON'S DISEASE
     Route: 048
     Dates: start: 20080927, end: 20090319
  2. FUROSEMIDE INTENSOL [Suspect]
     Indication: CARDIAC FAILURE
     Dosage: 40MG PER DAY
     Route: 048
     Dates: start: 20090311
  3. PAXIL [Concomitant]
     Indication: DEPRESSION
     Dosage: 10MG PER DAY
     Route: 048
     Dates: end: 20090320
  4. DEPAS [Concomitant]
     Indication: DEPRESSION
     Dosage: 1MG PER DAY
     Route: 048
     Dates: end: 20090320
  5. WARFARIN [Concomitant]
     Indication: CEREBRAL INFARCTION
     Dosage: 3.5MG PER DAY
     Route: 048
     Dates: end: 20090320
  6. ASPENON [Concomitant]
     Indication: ATRIAL FIBRILLATION
     Dosage: 40MG PER DAY
     Route: 048
     Dates: end: 20090320
  7. MAGLAX [Concomitant]
     Dosage: 1000MG PER DAY
     Route: 048
     Dates: end: 20090320
  8. EPLERENONE [Concomitant]
     Route: 048

REACTIONS (4)
  - CARDIAC FAILURE [None]
  - DECREASED APPETITE [None]
  - MOVEMENT DISORDER [None]
  - WEIGHT INCREASED [None]
